FAERS Safety Report 9969001 (Version 1)
Quarter: 2014Q1

REPORT INFORMATION
  Report Type: Report from Study
  Country: US (occurrence: US)
  Receive Date: 20140306
  Receipt Date: 20140306
  Transmission Date: 20141002
  Serious: No
  Sender: FDA-Public Use
  Company Number: US-ABBVIE-13P-163-1144521-00

PATIENT
  Age: 46 Year
  Sex: Female

DRUGS (1)
  1. HUMIRA [Suspect]
     Indication: PSORIATIC ARTHROPATHY
     Dates: start: 201306

REACTIONS (6)
  - Injection site warmth [Recovered/Resolved]
  - Injection site papule [Recovered/Resolved]
  - Injection site papule [Recovered/Resolved]
  - Injection site induration [Recovered/Resolved]
  - Injection site warmth [Recovered/Resolved]
  - Injection site induration [Recovered/Resolved]
